FAERS Safety Report 13037398 (Version 1)
Quarter: 2016Q4

REPORT INFORMATION
  Report Type: Report from Study
  Country: US (occurrence: US)
  Receive Date: 20161216
  Receipt Date: 20161216
  Transmission Date: 20170207
  Serious: No
  Sender: FDA-Public Use
  Company Number: US-AMGEN-USASL2016174377

PATIENT
  Age: 52 Year
  Sex: Female

DRUGS (3)
  1. ENBREL [Suspect]
     Active Substance: ETANERCEPT
     Indication: RHEUMATOID ARTHRITIS
     Dosage: UNK
     Route: 065
     Dates: end: 2013
  2. ENBREL [Suspect]
     Active Substance: ETANERCEPT
     Indication: FIBROMYALGIA
     Dosage: 50 MG, QWK
     Route: 065
     Dates: start: 2016
  3. ENBREL [Suspect]
     Active Substance: ETANERCEPT
     Indication: INTERVERTEBRAL DISC DEGENERATION

REACTIONS (3)
  - Unevaluable event [Unknown]
  - Nasopharyngitis [Not Recovered/Not Resolved]
  - Off label use [Unknown]

NARRATIVE: CASE EVENT DATE: 2013
